FAERS Safety Report 9099192 (Version 1)
Quarter: 2013Q1

REPORT INFORMATION
  Report Type: Spontaneous
  Country: US (occurrence: US)
  Receive Date: 20130213
  Receipt Date: 20130213
  Transmission Date: 20140127
  Serious: Yes (Other)
  Sender: FDA-Public Use
  Company Number: US-ASTRAZENECA-2013SE07939

PATIENT
  Age: 67 Year
  Sex: Female

DRUGS (11)
  1. ROSUVASTATIN [Suspect]
     Route: 048
  2. AMLODIPINE [Suspect]
  3. SERTRALINE [Suspect]
  4. SERTRALINE [Suspect]
  5. SERTRALINE [Suspect]
  6. DULOXETINE [Suspect]
  7. ALPRAZOLAM [Concomitant]
  8. METOPROLOL [Concomitant]
  9. HYDROCHLOROTHIAZIDE/TRIAMTERENE [Concomitant]
     Dosage: 25 MG/37.5 MG/DAY
  10. METFORMIN [Concomitant]
  11. SITAGLIPTIN [Concomitant]

REACTIONS (1)
  - Gynaecomastia [Recovered/Resolved]
